FAERS Safety Report 9390907 (Version 1)
Quarter: 2013Q3

REPORT INFORMATION
  Report Type: Spontaneous
  Country: DE (occurrence: None)
  Receive Date: 20130705
  Receipt Date: 20130705
  Transmission Date: 20140515
  Serious: Yes (Hospitalization)
  Sender: FDA-Public Use
  Company Number: DE-022846

PATIENT
  Age: 78 Year
  Sex: Female
  Weight: 103 kg

DRUGS (5)
  1. CHLORAMBUCIL [Suspect]
     Indication: CHRONIC LYMPHOCYTIC LEUKAEMIA
     Dosage: 10 MG/M2 DAYS 1-7 EVERY 28 DAYS, ORAL
     Route: 048
     Dates: start: 20110329
  2. ENALAPRIL [Concomitant]
  3. BISOPROLOL [Concomitant]
  4. SORMODREN [Concomitant]
  5. OXYCODAN [Concomitant]

REACTIONS (3)
  - Dizziness [None]
  - Malaise [None]
  - Nausea [None]
